FAERS Safety Report 11858298 (Version 2)
Quarter: 2016Q1

REPORT INFORMATION
  Report Type: Spontaneous
  Country: US (occurrence: US)
  Receive Date: 20151222
  Receipt Date: 20160114
  Transmission Date: 20160526
  Serious: No
  Sender: FDA-Public Use
  Company Number: US-ASTRAZENECA-2015SF26577

PATIENT
  Age: 22802 Day
  Sex: Male
  Weight: 121.6 kg

DRUGS (1)
  1. PULMICORT FLEXHALER [Suspect]
     Active Substance: BUDESONIDE
     Indication: DYSPNOEA
     Dosage: 180MCG ONE PUFF, TWO TIMES A DAY
     Route: 055
     Dates: start: 20151207

REACTIONS (3)
  - Circumstance or information capable of leading to medication error [Unknown]
  - Malaise [Unknown]
  - Device failure [Unknown]

NARRATIVE: CASE EVENT DATE: 20151207
